FAERS Safety Report 6229804-X (Version None)
Quarter: 2009Q2

REPORT INFORMATION
  Report Type: 
  Country: None (occurrence: None)
  Receive Date: 20090615
  Receipt Date: 20090603
  Transmission Date: 20091009
  Serious: Yes (Death)
  Sender: FDA-Public Use
  Company Number: JP-PFIZER INC-2009224518

PATIENT
  Age: 38 Year

DRUGS (1)
  1. SILDENAFIL CITRATE [Suspect]
     Indication: PULMONARY HYPERTENSION
     Dosage: FREQUENCY: 3X/DAY,
     Route: 048

REACTIONS (1)
  - CIRCULATORY COLLAPSE [None]
